FAERS Safety Report 11848018 (Version 1)
Quarter: 2015Q4

REPORT INFORMATION
  Report Type: Spontaneous
  Country: NL (occurrence: NL)
  Receive Date: 20151217
  Receipt Date: 20151217
  Transmission Date: 20160305
  Serious: Yes (Hospitalization)
  Sender: FDA-Public Use
  Company Number: NL-VALIDUS PHARMACEUTICALS LLC-NL-2015VAL000815

PATIENT
  Age: 44 Year
  Sex: Male

DRUGS (1)
  1. METOPROLOL TARTRATE. [Suspect]
     Active Substance: METOPROLOL TARTRATE
     Indication: ESSENTIAL HYPERTENSION
     Dosage: 50 MG, UNK

REACTIONS (8)
  - Agitation [Recovered/Resolved]
  - Substance-induced psychotic disorder [Recovered/Resolved]
  - Delusional perception [Recovered/Resolved]
  - Restlessness [Recovered/Resolved]
  - Initial insomnia [Recovered/Resolved]
  - Thinking abnormal [Recovered/Resolved]
  - Hallucination, visual [Recovered/Resolved]
  - Confusional state [Recovered/Resolved]
